FAERS Safety Report 6093229-0 (Version None)
Quarter: 2009Q1

REPORT INFORMATION
  Report Type: 
  Country: None (occurrence: None)
  Receive Date: 20090226
  Receipt Date: 20090122
  Transmission Date: 20090719
  Serious: No
  Sender: FDA-Public Use
  Company Number: US-BAYER-200912044NA

PATIENT
  Age: 45 Year
  Sex: Male
  Weight: 90 kg

DRUGS (3)
  1. ULTRAVIST 370 [Suspect]
     Indication: COMPUTERISED TOMOGRAM THORAX
     Dosage: TOTAL DAILY DOSE: 100 ML  UNIT DOSE: 500 ML
     Route: 042
     Dates: start: 20090122, end: 20090122
  2. LOTREL [Concomitant]
  3. ZOLOFT [Concomitant]

REACTIONS (1)
  - URTICARIA [None]
